FAERS Safety Report 13668568 (Version 1)
Quarter: 2017Q2

REPORT INFORMATION
  Report Type: Spontaneous
  Country: US (occurrence: US)
  Receive Date: 20170620
  Receipt Date: 20170620
  Transmission Date: 20170830
  Serious: Yes (Other)
  Sender: FDA-Public Use
  Company Number: US-JNJFOC-20170519026

PATIENT
  Age: 58 Year
  Sex: Male
  Weight: 88.45 kg

DRUGS (4)
  1. RESTORIL [Concomitant]
     Active Substance: TEMAZEPAM
     Dosage: SELDOM
     Route: 065
  2. ELOCON [Concomitant]
     Active Substance: MOMETASONE FUROATE
     Dosage: RARELY
     Route: 065
  3. EZETIMIBE/SIMVASTATIN [Concomitant]
     Active Substance: EZETIMIBE\SIMVASTATIN
     Indication: HYPERCHOLESTEROLAEMIA
     Dosage: DAILY
     Route: 065
  4. STELARA [Suspect]
     Active Substance: USTEKINUMAB
     Indication: PSORIASIS
     Route: 058
     Dates: start: 201609

REACTIONS (1)
  - Hypertriglyceridaemia [Not Recovered/Not Resolved]

NARRATIVE: CASE EVENT DATE: 20170510
